FAERS Safety Report 21810903 (Version 2)
Quarter: 2023Q1

REPORT INFORMATION
  Report Type: Report from Study
  Country: US (occurrence: US)
  Receive Date: 20230103
  Receipt Date: 20230322
  Transmission Date: 20230418
  Serious: No
  Sender: FDA-Public Use
  Company Number: US-ABBVIE-4212348

PATIENT
  Age: 43 Year
  Sex: Female

DRUGS (5)
  1. RINVOQ [Suspect]
     Active Substance: UPADACITINIB
     Indication: Rheumatoid arthritis
     Dosage: DISCONTINUED
     Route: 048
     Dates: start: 20221108
  2. RINVOQ [Suspect]
     Active Substance: UPADACITINIB
     Indication: Rheumatoid arthritis
     Dosage: STRENGTH 30 MG
     Route: 048
     Dates: start: 20230208
  3. Pfizer/BioNTech [Concomitant]
     Indication: COVID-19 immunisation
     Dosage: FIRST DOSE.
     Route: 030
     Dates: start: 20211003, end: 20211003
  4. Pfizer/BioNTech [Concomitant]
     Indication: COVID-19 immunisation
     Dosage: SECOND DOSE.
     Route: 030
     Dates: start: 20210331, end: 20210331
  5. Pfizer/BioNTech [Concomitant]
     Indication: COVID-19 immunisation
     Dosage: THIRD DOSE.
     Route: 030
     Dates: start: 20210824, end: 20210824

REACTIONS (8)
  - Upper respiratory tract infection [Recovering/Resolving]
  - Stress [Unknown]
  - Oral herpes [Not Recovered/Not Resolved]
  - Chest pain [Recovering/Resolving]
  - Productive cough [Recovering/Resolving]
  - Pyrexia [Recovered/Resolved]
  - Nasal congestion [Recovered/Resolved]
  - Cough [Recovered/Resolved]

NARRATIVE: CASE EVENT DATE: 20230101
